FAERS Safety Report 6338267-5 (Version None)
Quarter: 2009Q3

REPORT INFORMATION
  Report Type: 
  Country: None (occurrence: None)
  Receive Date: 20090902
  Receipt Date: 20090825
  Transmission Date: 20100115
  Serious: Yes (Hospitalization)
  Sender: FDA-Public Use
  Company Number: ES-WATSON-2009-06903

PATIENT
  Age: 79 Year
  Sex: Male

DRUGS (4)
  1. CABERGOLINE (WATSON LABORATORIES) [Suspect]
     Indication: PARKINSON'S DISEASE
     Dosage: 2 MG, DAILY
  2. METHYLPHENIDATE HCL [Concomitant]
     Indication: PARKINSON'S DISEASE
     Dosage: 20 MG, DAILY
  3. LEVODOPA [Concomitant]
     Indication: PARKINSON'S DISEASE
     Dosage: 250 MG, DAILY
  4. RASAGILINE [Concomitant]
     Indication: PARKINSON'S DISEASE
     Dosage: 1 MG, DAILY

REACTIONS (2)
  - PLEURAL EFFUSION [None]
  - PULMONARY HYPERTENSION [None]
